FAERS Safety Report 18358127 (Version 2)
Quarter: 2020Q4

REPORT INFORMATION
  Report Type: Report from Study
  Country: None (occurrence: US)
  Receive Date: 20201008
  Receipt Date: 20201013
  Transmission Date: 20210114
  Serious: Yes (Other)
  Sender: FDA-Public Use
  Company Number: US-ABBVIE-20K-163-3592397-00

PATIENT
  Sex: Female

DRUGS (1)
  1. SKYRIZI [Suspect]
     Active Substance: RISANKIZUMAB-RZAA
     Indication: PSORIASIS
     Route: 058
     Dates: start: 20200826

REACTIONS (4)
  - Small intestine ulcer [Unknown]
  - Fistula [Unknown]
  - Hepatic enzyme increased [Unknown]
  - Bacterial infection [Unknown]

NARRATIVE: CASE EVENT DATE: 2020
